FAERS Safety Report 16727553 (Version 1)
Quarter: 2019Q3

REPORT INFORMATION
  Report Type: Spontaneous
  Country: FR (occurrence: FR)
  Receive Date: 20190822
  Receipt Date: 20190822
  Transmission Date: 20191005
  Serious: Yes (Other)
  Sender: FDA-Public Use
  Company Number: FR-SUN PHARMACEUTICAL INDUSTRIES LTD-2019RR-218318

PATIENT
  Age: 66 Year
  Sex: Female
  Weight: 83 kg

DRUGS (4)
  1. LAROXYL [Suspect]
     Active Substance: AMITRIPTYLINE HYDROCHLORIDE
     Indication: SCIATICA
     Dosage: 20 GTT, DAILY
     Route: 048
     Dates: start: 20180915, end: 20190506
  2. OMEPRAZOLE. [Suspect]
     Active Substance: OMEPRAZOLE
     Indication: GASTROOESOPHAGEAL REFLUX DISEASE
     Dosage: 10 MILLIGRAM, DAILY
     Route: 048
     Dates: start: 20181003, end: 20190412
  3. KERLONE 20 MG, COMPRIME PELLICULE SECABLE [Concomitant]
     Indication: OBSTRUCTION GASTRIC
     Dosage: 20 MILLIGRAM, DAILY
     Route: 048
     Dates: start: 20000101
  4. ALPRAZOLAM. [Concomitant]
     Active Substance: ALPRAZOLAM
     Indication: DEPRESSION
     Dosage: (3) DAILY
     Route: 048
     Dates: start: 19830101

REACTIONS (1)
  - Hepatocellular injury [Recovered/Resolved]

NARRATIVE: CASE EVENT DATE: 20190103
